FAERS Safety Report 22119291 (Version 1)
Quarter: 2023Q1

REPORT INFORMATION
  Report Type: Spontaneous
  Country: US (occurrence: None)
  Receive Date: 20230320
  Receipt Date: 20230320
  Transmission Date: 20230418
  Serious: Yes (Disabling)
  Sender: FDA-Public Use
  Company Number: None

PATIENT
  Age: 28 Year
  Sex: Female
  Weight: 99 kg

DRUGS (5)
  1. HERBALS\TETRAHYDROCANNABINOL UNSPECIFIED [Suspect]
     Active Substance: HERBALS\TETRAHYDROCANNABINOL UNSPECIFIED
  2. INSULIN NOS [Concomitant]
     Active Substance: INSULIN NOS
  3. LAMICTAL [Concomitant]
     Active Substance: LAMOTRIGINE
  4. LOXAPINE [Concomitant]
     Active Substance: LOXAPINE
  5. MOTRIN [Concomitant]
     Active Substance: IBUPROFEN

REACTIONS (2)
  - Tension headache [None]
  - Brain injury [None]

NARRATIVE: CASE EVENT DATE: 20211111
